FAERS Safety Report 8139249-3 (Version None)
Quarter: 2012Q1

REPORT INFORMATION
  Report Type: 
  Country: None (occurrence: None)
  Receive Date: 20120215
  Receipt Date: 20120206
  Transmission Date: 20120608
  Serious: Yes (Hospitalization)
  Sender: FDA-Public Use
  Company Number: US-ABBOTT-12P-163-0902140-00

PATIENT
  Sex: Female

DRUGS (8)
  1. HUMIRA [Suspect]
     Route: 058
     Dates: start: 20111222, end: 20111222
  2. HUMIRA [Suspect]
     Indication: CROHN'S DISEASE
     Route: 058
     Dates: start: 20111208, end: 20111208
  3. HUMIRA [Suspect]
     Route: 058
     Dates: start: 20120105
  4. ISONIAZID [Concomitant]
     Indication: TUBERCULIN TEST POSITIVE
     Route: 048
     Dates: start: 20111101
  5. LEXAPRO [Concomitant]
     Indication: DEPRESSION
     Route: 048
  6. IMITREX [Concomitant]
     Indication: MIGRAINE
     Route: 048
  7. PROPRANOLOL [Concomitant]
     Indication: PALPITATIONS
     Route: 048
  8. CLONAZEPAM [Concomitant]
     Indication: ANXIETY
     Route: 048

REACTIONS (10)
  - DYSSTASIA [None]
  - VOMITING [None]
  - ASTHENIA [None]
  - DIARRHOEA [None]
  - INJECTION SITE HAEMATOMA [None]
  - SCAR PAIN [None]
  - INJECTION SITE URTICARIA [None]
  - INJECTION SITE ERYTHEMA [None]
  - INJECTION SITE DISCOLOURATION [None]
  - INJECTION SITE PRURITUS [None]
